FAERS Safety Report 8623446-4 (Version None)
Quarter: 2012Q3

REPORT INFORMATION
  Report Type: 
  Country: None (occurrence: None)
  Receive Date: 20120827
  Receipt Date: 20120727
  Transmission Date: 20120928
  Serious: Yes (Other)
  Sender: FDA-Public Use
  Company Number: NL-009507513-1208NLD010243

PATIENT

DRUGS (3)
  1. TEGRETOL [Concomitant]
     Dosage: 400 MG, UNK
     Dates: start: 20050101
  2. KEPPRA [Concomitant]
     Indication: EPILEPSY
     Dosage: 500 MG, UNK
     Dates: start: 20051010
  3. TEMOZOLOMIDE [Suspect]
     Indication: ASTROCYTOMA, LOW GRADE
     Dosage: 150 MG, QD
     Dates: start: 20060324, end: 20070215

REACTIONS (1)
  - DIFFUSE LARGE B-CELL LYMPHOMA STAGE III [None]
